FAERS Safety Report 7151093-2 (Version None)
Quarter: 2010Q4

REPORT INFORMATION
  Report Type: 
  Country: None (occurrence: None)
  Receive Date: 20101206
  Receipt Date: 20101206
  Transmission Date: 20110411
  Serious: Yes (Hospitalization)
  Sender: FDA-Public Use
  Company Number: None

PATIENT
  Age: 55 Year
  Sex: Male
  Weight: 107 kg

DRUGS (1)
  1. PIPERACILLIN AND TAZOBACTAM [Suspect]
     Indication: CLOSTRIDIAL INFECTION
     Dosage: 2/0.25 MG QID IV
     Route: 042
     Dates: start: 20100726, end: 20100727

REACTIONS (1)
  - CLOSTRIDIAL INFECTION [None]
